FAERS Safety Report 10417371 (Version 1)
Quarter: 2014Q3

REPORT INFORMATION
  Report Type: Spontaneous
  Country: US (occurrence: US)
  Receive Date: 20140829
  Receipt Date: 20140829
  Transmission Date: 20150326
  Serious: Yes (Hospitalization)
  Sender: FDA-Public Use
  Company Number: GXBR2014US001926

PATIENT
  Sex: Female

DRUGS (1)
  1. METHYLPREDNISOLONE TABLETS USP [Suspect]
     Active Substance: METHYLPREDNISOLONE
     Indication: MULTIPLE SCLEROSIS RELAPSE
     Dosage: UNK DF, UNK

REACTIONS (4)
  - Face oedema [Unknown]
  - Erythema [Unknown]
  - Heart rate irregular [Unknown]
  - Chest pain [Unknown]

NARRATIVE: CASE EVENT DATE: 2013
